FAERS Safety Report 6304464-8 (Version None)
Quarter: 2009Q3

REPORT INFORMATION
  Report Type: 
  Country: None (occurrence: None)
  Receive Date: 20090806
  Receipt Date: 20090728
  Transmission Date: 20100115
  Serious: Yes (Hospitalization)
  Sender: FDA-Public Use
  Company Number: 09US002807

PATIENT
  Age: 23 Year
  Sex: Male
  Weight: 61.2 kg

DRUGS (1)
  1. LIQ ANTACID FSTACT MS ORIG LIQ 340 (MAGNESIUM HYDROXIDE 80 MG/ML, ALUM [Suspect]
     Indication: DYSPEPSIA
     Dosage: 2 TSP., BID, ORAL
     Route: 048

REACTIONS (3)
  - COLITIS [None]
  - DIARRHOEA [None]
  - VOMITING [None]
